FAERS Safety Report 8938146 (Version 2)
Quarter: 2013Q1

REPORT INFORMATION
  Report Type: Spontaneous
  Country: GB (occurrence: GB)
  Receive Date: 20121130
  Receipt Date: 20130325
  Transmission Date: 20140127
  Serious: Yes (Other)
  Sender: FDA-Public Use
  Company Number: GB-JNJFOC-20121112042

PATIENT
  Sex: Male

DRUGS (5)
  1. REGAINE UNSPECIFIED [Suspect]
     Indication: ALOPECIA
     Dosage: 1 DF 2 TIMES A DAY
     Route: 061
     Dates: start: 201209
  2. STATINS NOS [Concomitant]
     Route: 065
  3. TELMISARTAN [Concomitant]
     Route: 065
  4. WARFARIN [Concomitant]
     Route: 065
  5. REGAINE UNSPECIFIED [Suspect]
     Route: 061

REACTIONS (4)
  - Application site erythema [Recovered/Resolved]
  - Application site discolouration [Recovered/Resolved]
  - Skin exfoliation [Recovered/Resolved]
  - Paraesthesia [Not Recovered/Not Resolved]
